FAERS Safety Report 4389180-4 (Version None)
Quarter: 2004Q3

REPORT INFORMATION
  Report Type: 
  Country: None (occurrence: None)
  Receive Date: 20040701
  Receipt Date: 20040701
  Transmission Date: 20050211
  Serious: Yes (Hospitalization)
  Sender: FDA-Public Use
  Company Number: None

PATIENT
  Age: 69 Year
  Sex: Male
  Weight: 115 kg

DRUGS (13)
  1. CLOPIDOGREL 75 MG BID [Suspect]
     Indication: CORONARY ARTERIAL STENT INSERTION
     Dosage: 75 MG QDAY ORAL
     Route: 048
     Dates: start: 20031217, end: 20031225
  2. WARFARIN SODIUM [Suspect]
     Indication: DEEP VEIN THROMBOSIS
     Dosage: ON HOLD ORAL
     Route: 048
     Dates: start: 20021106, end: 20031217
  3. GATIFLOXACIN [Concomitant]
  4. TEMAZEPAM [Concomitant]
  5. SIMVASTATIN [Concomitant]
  6. LISINOPRIL [Concomitant]
  7. RANITIDINE HCL [Concomitant]
  8. TRIAMCINOLONE ACETONIDE [Concomitant]
  9. TRIAMCINOLONE [Concomitant]
  10. DOCUSATE NA [Concomitant]
  11. FLUNISOLIDE [Concomitant]
  12. FUROSEMIDE [Concomitant]
  13. CLOPIDOGREL BISULFATE [Concomitant]

REACTIONS (1)
  - RETROPERITONEAL HAEMORRHAGE [None]
